FAERS Safety Report 7161226-X (Version None)
Quarter: 2010Q4

REPORT INFORMATION
  Report Type: 
  Country: None (occurrence: None)
  Receive Date: 20101201
  Receipt Date: 20101122
  Transmission Date: 20110411
  Serious: Yes (Hospitalization)
  Sender: FDA-Public Use
  Company Number: 2010SP060437

PATIENT
  Age: 60 Year
  Sex: Male
  Weight: 100 kg

DRUGS (3)
  1. PEGINTERFERON ALFA-2B [Suspect]
     Indication: HEPATITIS C
     Dosage: 150 MCG; QW;
     Dates: start: 20091124, end: 20100915
  2. RIBAVIRIN [Suspect]
     Indication: HEPATITIS C
     Dates: end: 20100907
  3. ELAVIL [Concomitant]

REACTIONS (1)
  - HEPATIC NEOPLASM [None]
